FAERS Safety Report 5038001-5 (Version None)
Quarter: 2006Q2

REPORT INFORMATION
  Report Type: 
  Country: None (occurrence: None)
  Receive Date: 20060616
  Receipt Date: 20050914
  Transmission Date: 20061013
  Serious: No
  Sender: FDA-Public Use
  Company Number: NUBN20050016

PATIENT
  Age: 42 Year
  Sex: Female
  Weight: 90.7194 kg

DRUGS (8)
  1. NUBAIN [Suspect]
     Indication: PAIN
     Dosage: IV
     Route: 042
     Dates: start: 20040101, end: 20040101
  2. NUBAIN [Suspect]
     Indication: PAIN IN EXTREMITY
     Dosage: IM
     Route: 030
     Dates: start: 19950101, end: 19950101
  3. EFFEXOR [Concomitant]
  4. WELLBUTRIN [Concomitant]
  5. XANAX [Concomitant]
  6. AMBIEN [Concomitant]
  7. TOPROL-XL [Concomitant]
  8. PREMARIN [Concomitant]

REACTIONS (2)
  - AGITATION [None]
  - INJECTION SITE ABSCESS [None]
